FAERS Safety Report 5297636-5 (Version None)
Quarter: 2007Q2

REPORT INFORMATION
  Report Type: 
  Country: None (occurrence: None)
  Receive Date: 20070416
  Receipt Date: 20070404
  Transmission Date: 20071010
  Serious: Yes (Hospitalization)
  Sender: FDA-Public Use
  Company Number: BE-NOVOPROD-260793

PATIENT
  Age: 78 Year
  Sex: Female

DRUGS (4)
  1. NOVONORM [Suspect]
     Indication: DIABETES MELLITUS NON-INSULIN-DEPENDENT
     Dosage: 3 MG, QD
     Route: 048
     Dates: start: 20060801
  2. ELTHYRONE [Concomitant]
     Dosage: 150 UNK, UNK
  3. COMBIVENT                          /01033501/ [Concomitant]
  4. FRAXIPARINE [Concomitant]

REACTIONS (1)
  - HYPOGLYCAEMIC COMA [None]
